FAERS Safety Report 8236786-8 (Version None)
Quarter: 2012Q1

REPORT INFORMATION
  Report Type: 
  Country: None (occurrence: None)
  Receive Date: 20120327
  Receipt Date: 20120326
  Transmission Date: 20120608
  Serious: Yes (Other)
  Sender: FDA-Public Use
  Company Number: JP-B.I. PHARMACEUTICALS,INC./RIDGEFIELD-2012-BP-05715NB

PATIENT
  Age: 8 Decade
  Sex: Female

DRUGS (1)
  1. MICARDIS [Suspect]
     Indication: HYPERTENSION
     Route: 048

REACTIONS (3)
  - RESPIRATORY TRACT CARCINOMA IN SITU [None]
  - CANCER PAIN [None]
  - NEOPLASM MALIGNANT [None]
